FAERS Safety Report 8145412-8 (Version None)
Quarter: 2012Q1

REPORT INFORMATION
  Report Type: 
  Country: None (occurrence: None)
  Receive Date: 20120217
  Receipt Date: 20120216
  Transmission Date: 20120608
  Serious: Yes (Other)
  Sender: FDA-Public Use
  Company Number: US-PFIZER INC-2012042534

PATIENT
  Sex: Female

DRUGS (7)
  1. TRICOR [Concomitant]
     Dosage: UNK
  2. ASPIRIN [Concomitant]
     Dosage: UNK
  3. FOLIC ACID [Concomitant]
     Dosage: UNK
  4. LIPITOR [Suspect]
     Dosage: UNK
     Route: 048
  5. ASCORBIC ACID [Concomitant]
     Dosage: UNK
  6. LIPITOR [Suspect]
     Indication: BLOOD CHOLESTEROL INCREASED
     Dosage: 20 MG, 1X/DAY
     Route: 048
     Dates: start: 20050101
  7. LOVAZA [Concomitant]
     Dosage: UNK

REACTIONS (2)
  - MALAISE [None]
  - BRONCHITIS [None]
